FAERS Safety Report 9779887 (Version 3)
Quarter: 2014Q1

REPORT INFORMATION
  Report Type: Report from Study
  Country: JP (occurrence: JP)
  Receive Date: 20131223
  Receipt Date: 20140103
  Transmission Date: 20141002
  Serious: Yes (Hospitalization)
  Sender: FDA-Public Use
  Company Number: JP-UCBSA-104053

PATIENT
  Age: 57 Year
  Sex: Male
  Weight: 51.2 kg

DRUGS (6)
  1. E KEPPRA [Suspect]
     Indication: PARTIAL SEIZURES WITH SECONDARY GENERALISATION
     Route: 048
     Dates: start: 20130614, end: 20130924
  2. E KEPPRA [Suspect]
     Indication: SIMPLE PARTIAL SEIZURES
     Route: 048
     Dates: start: 20130614, end: 20130924
  3. ALEVIATIN [Suspect]
     Indication: PARTIAL SEIZURES WITH SECONDARY GENERALISATION
     Route: 048
     Dates: end: 20130930
  4. ALEVIATIN [Suspect]
     Indication: SIMPLE PARTIAL SEIZURES
     Route: 048
     Dates: end: 20130930
  5. CISPLATIN [Suspect]
     Indication: BRAIN NEOPLASM
     Dosage: DAILY DOSE: 88MG
     Route: 041
     Dates: start: 20130627, end: 20130821
  6. IRINOTECAN HYDROCHLORIDE HYDRATE [Suspect]
     Indication: BRAIN NEOPLASM
     Dosage: DAILY DOSE: 88MG
     Route: 041
     Dates: start: 20130627, end: 20130821

REACTIONS (9)
  - Stevens-Johnson syndrome [Recovering/Resolving]
  - Aspartate aminotransferase increased [Recovering/Resolving]
  - Alanine aminotransferase increased [Recovering/Resolving]
  - Gamma-glutamyltransferase increased [Recovering/Resolving]
  - Blood creatine phosphokinase increased [Unknown]
  - Blood sodium decreased [Recovering/Resolving]
  - Blood potassium decreased [Recovering/Resolving]
  - Blood chloride decreased [Recovering/Resolving]
  - Platelet count decreased [Not Recovered/Not Resolved]
